FAERS Safety Report 5865272-5 (Version None)
Quarter: 2008Q3

REPORT INFORMATION
  Report Type: 
  Country: None (occurrence: None)
  Receive Date: 20080829
  Receipt Date: 20080428
  Transmission Date: 20090109
  Serious: No
  Sender: FDA-Public Use
  Company Number: A0717851A

PATIENT
  Age: 59 Year
  Sex: Male

DRUGS (2)
  1. BECONASE [Suspect]
     Indication: SINUS CONGESTION
     Dosage: 1PUFF TWICE PER DAY
     Route: 045
     Dates: start: 20010419
  2. PAIN MEDICATIONS [Concomitant]

REACTIONS (3)
  - DRUG INEFFECTIVE [None]
  - PAROSMIA [None]
  - PHARMACEUTICAL PRODUCT COMPLAINT [None]
